FAERS Safety Report 5604105-9 (Version None)
Quarter: 2008Q1

REPORT INFORMATION
  Report Type: 
  Country: None (occurrence: None)
  Receive Date: 20080123
  Receipt Date: 20080123
  Transmission Date: 20080703
  Serious: No
  Sender: FDA-Public Use
  Company Number: None

PATIENT
  Age: 14 Month
  Sex: Male
  Weight: 12.4739 kg

DRUGS (3)
  1. HYCODAN [Suspect]
     Indication: COUGH
     Dosage: .5 TEASPOON 1X A DAY PO
     Route: 048
     Dates: start: 20080115, end: 20080116
  2. HYCODAN [Suspect]
     Indication: EAR INFECTION
     Dosage: .5 TEASPOON 1X A DAY PO
     Route: 048
     Dates: start: 20080115, end: 20080116
  3. HYCODAN [Suspect]
     Indication: PYREXIA
     Dosage: .5 TEASPOON 1X A DAY PO
     Route: 048
     Dates: start: 20080115, end: 20080116

REACTIONS (3)
  - DRUG INEFFECTIVE [None]
  - INSOMNIA [None]
  - PSYCHOMOTOR HYPERACTIVITY [None]
